FAERS Safety Report 11645848 (Version 1)
Quarter: 2015Q4

REPORT INFORMATION
  Report Type: Spontaneous
  Country: US (occurrence: US)
  Receive Date: 20151020
  Receipt Date: 20151020
  Transmission Date: 20160304
  Serious: No
  Sender: FDA-Public Use
  Company Number: US-AMGEN-USASP2015081378

PATIENT
  Age: 20 Year
  Sex: Female

DRUGS (6)
  1. MIDODRINE [Concomitant]
     Active Substance: MIDODRINE
     Dosage: 2.5 MG, TID
  2. CLARITIN [Concomitant]
     Active Substance: LORATADINE
     Dosage: 10 MG, ONCE DAILY
  3. ZOFRAN [Concomitant]
     Active Substance: ONDANSETRON HYDROCHLORIDE
     Indication: NAUSEA
     Dosage: 4 MG, EVERY 6 HOURS AS NEEDED
  4. CORLANOR [Suspect]
     Active Substance: IVABRADINE HYDROCHLORIDE
     Indication: POSTURAL ORTHOSTATIC TACHYCARDIA SYNDROME
     Dosage: 5 MG, BID
     Route: 065
     Dates: start: 20150720
  5. SPRINTEC [Concomitant]
     Active Substance: ETHINYL ESTRADIOL\NORGESTIMATE
     Dosage: ONE TABLET DAILY
  6. ALBUTEROL                          /00139501/ [Concomitant]
     Active Substance: ALBUTEROL
     Dosage: ONE PUFF AS NEEDED

REACTIONS (2)
  - Off label use [Unknown]
  - Increased tendency to bruise [Unknown]
